FAERS Safety Report 20876163 (Version 1)
Quarter: 2022Q2

REPORT INFORMATION
  Report Type: Spontaneous
  Country: TR (occurrence: TR)
  Receive Date: 20220526
  Receipt Date: 20220526
  Transmission Date: 20220720
  Serious: Yes (Hospitalization, Other)
  Sender: FDA-Public Use
  Company Number: TR-SUN PHARMACEUTICAL INDUSTRIES LTD-2021R1-320858

PATIENT
  Age: 36 Year
  Sex: Male

DRUGS (2)
  1. BUPROPION [Suspect]
     Active Substance: BUPROPION
     Indication: Product used for unknown indication
     Dosage: 2250 MILLIGRAM
     Route: 048
  2. ALPRAZOLAM [Suspect]
     Active Substance: ALPRAZOLAM
     Indication: Insomnia
     Dosage: UNK
     Route: 065

REACTIONS (12)
  - Substance use disorder [Unknown]
  - Irritability [Unknown]
  - Intentional product misuse [Unknown]
  - Tremor [Unknown]
  - Psychomotor hyperactivity [Unknown]
  - Anxiety [Unknown]
  - Insomnia [Unknown]
  - Hyperhidrosis [Unknown]
  - Panic attack [Unknown]
  - Flushing [Unknown]
  - Anxiety [Unknown]
  - Agitation [Unknown]
